FAERS Safety Report 16421993 (Version 1)
Quarter: 2019Q2

REPORT INFORMATION
  Report Type: Spontaneous
  Country: DE (occurrence: DE)
  Receive Date: 20190612
  Receipt Date: 20190612
  Transmission Date: 20190711
  Serious: Yes (Death)
  Sender: FDA-Public Use
  Company Number: DE-PFIZER INC-2019242589

PATIENT
  Age: 39 Year
  Sex: Male

DRUGS (15)
  1. AMPHETAMINE [Suspect]
     Active Substance: AMPHETAMINE
  2. ALPRAZOLAM. [Suspect]
     Active Substance: ALPRAZOLAM
  3. LORAZEPAM. [Suspect]
     Active Substance: LORAZEPAM
  4. U-47700 [Suspect]
     Active Substance: U-47700
  5. METHYLENEDIOXYMETHAMPHETAMINE [Suspect]
     Active Substance: MIDOMAFETAMINE
  6. BROMAZEPAM [Suspect]
     Active Substance: BROMAZEPAM
  7. DIAZEPAM. [Suspect]
     Active Substance: DIAZEPAM
  8. OXAZEPAM. [Suspect]
     Active Substance: OXAZEPAM
  9. 1 HYDROXYMIDAZOLAM [Suspect]
     Active Substance: 1-HYDROXYMIDAZOLAM
  10. METHAMPHETAMINE HCL [Suspect]
     Active Substance: METHAMPHETAMINE HYDROCHLORIDE
  11. FENTANYL. [Suspect]
     Active Substance: FENTANYL
  12. TEMAZEPAM. [Suspect]
     Active Substance: TEMAZEPAM
  13. ZOLPIDEM [Suspect]
     Active Substance: ZOLPIDEM\ZOLPIDEM TARTRATE
  14. NORDAZEPAM [Suspect]
     Active Substance: NORDAZEPAM
  15. MIDAZOLAM [Suspect]
     Active Substance: MIDAZOLAM HYDROCHLORIDE

REACTIONS (1)
  - Toxicity to various agents [Fatal]
